FAERS Safety Report 20059583 (Version 1)
Quarter: 2021Q4

REPORT INFORMATION
  Report Type: Report from Study
  Country: AT (occurrence: AT)
  Receive Date: 20211111
  Receipt Date: 20211111
  Transmission Date: 20220303
  Serious: Yes (Life-Threatening, Other)
  Sender: FDA-Public Use
  Company Number: None

PATIENT
  Age: 70 Year
  Sex: Male
  Weight: 94 kg

DRUGS (7)
  1. CYTARABINE [Suspect]
     Active Substance: CYTARABINE
     Indication: Acute myeloid leukaemia
     Dosage: 205 MILLIGRAM, QD
     Route: 065
     Dates: start: 20120713
  2. ETOPOSIDE [Suspect]
     Active Substance: ETOPOSIDE
     Indication: Acute myeloid leukaemia
     Dosage: 205 MILLIGRAM, QD
     Route: 065
     Dates: start: 20120713
  3. TRETINOIN [Suspect]
     Active Substance: TRETINOIN
     Indication: Acute myeloid leukaemia
     Dosage: 120 MILLIGRAM, QD
     Route: 065
     Dates: start: 20120718
  4. IDARUBICIN HYDROCHLORIDE [Suspect]
     Active Substance: IDARUBICIN HYDROCHLORIDE
     Indication: Acute myeloid leukaemia
     Dosage: 24 MILLIGRAM, QD
     Route: 065
     Dates: start: 20120713
  5. RIFAXIMIN [Concomitant]
     Active Substance: RIFAXIMIN
     Dosage: 600 MILLIGRAM, QD
     Route: 042
     Dates: start: 20120720
  6. VFEND [Concomitant]
     Active Substance: VORICONAZOLE
     Dosage: 800 MILLIGRAM, QD
     Route: 048
     Dates: start: 20120720
  7. TAZOBACTAM [Concomitant]
     Active Substance: TAZOBACTAM
     Dosage: 13.5 MILLIGRAM, QD
     Route: 042
     Dates: start: 20120718

REACTIONS (1)
  - Respiratory failure [Recovered/Resolved]

NARRATIVE: CASE EVENT DATE: 20120720
